FAERS Safety Report 6057133-6 (Version None)
Quarter: 2009Q1

REPORT INFORMATION
  Report Type: 
  Country: None (occurrence: None)
  Receive Date: 20090129
  Receipt Date: 20090121
  Transmission Date: 20090719
  Serious: Yes (Other)
  Sender: FDA-Public Use
  Company Number: AU-AVENTIS-200910816GDDC

PATIENT
  Age: 58 Year
  Sex: Female

DRUGS (5)
  1. ARAVA [Suspect]
     Indication: RHEUMATOID ARTHRITIS
     Route: 048
     Dates: start: 20061013, end: 20081028
  2. ARAVA [Suspect]
     Route: 048
     Dates: start: 20081028, end: 20081201
  3. ZOCOR [Concomitant]
     Dosage: DOSE: UNK
  4. TENORMIN [Concomitant]
     Dosage: DOSE: UNK
  5. LASIX [Concomitant]
     Dosage: DOSE: UNK

REACTIONS (5)
  - COUGH [None]
  - HERPES ZOSTER [None]
  - HYPERTENSION [None]
  - INFLUENZA [None]
  - LIVER FUNCTION TEST ABNORMAL [None]
